FAERS Safety Report 7600354-9 (Version None)
Quarter: 2011Q2

REPORT INFORMATION
  Report Type: 
  Country: None (occurrence: None)
  Receive Date: 20110629
  Receipt Date: 20110614
  Transmission Date: 20111010
  Serious: Yes (Death)
  Sender: FDA-Public Use
  Company Number: MYCO20110003

PATIENT
  Age: 63 Year
  Sex: Male

DRUGS (11)
  1. PENTAMIDINE ISETHIONATE [Suspect]
     Dosage: INHALATION
     Route: 055
  2. MYCOPHENOLATE MEFETIL [Suspect]
     Indication: GRAFT VERSUS HOST DISEASE
     Dosage: 3000 MG, 3 IN 1 D, ORAL
     Route: 048
     Dates: start: 20090101
  3. ACYCLOVIR [Suspect]
     Dates: start: 20090101, end: 20090101
  4. METHYLPREDNISOLONE 4MG TAB [Suspect]
     Indication: GRAFT VERSUS HOST DISEASE
     Dosage: 2 MG/KG, INTRAVENOUS
     Route: 042
     Dates: start: 20090101
  5. DACLIZUMAB (DACLIZUMAB) [Suspect]
     Indication: GRAFT VERSUS HOST DISEASE
     Dosage: 1MG/KG/DAY, 5 TIMES,
     Dates: start: 20090101
  6. VORICONAZOLE [Suspect]
     Indication: GRAFT VERSUS HOST DISEASE
     Dates: start: 20090101, end: 20090101
  7. TACROLIMUS [Suspect]
     Indication: GRAFT VERSUS HOST DISEASE
     Dosage: INTRAVENOUS DRIP
     Route: 041
     Dates: start: 20090101
  8. RITUXIMAB (RITUXIMAB) [Suspect]
     Indication: GRAFT VERSUS HOST DISEASE
     Dosage: 375MG/M2, 1 IN 1 WK,
     Dates: start: 20090101, end: 20090101
  9. ALEMTUZUMAB (ALEMTUZUMAB) [Suspect]
     Indication: GRAFT VERSUS HOST DISEASE
     Dosage: 3 MG, 1 IN 1 D,; 30 MG, 3 IN 1 WK,; 10 MG, 3 IN 1 WK,
     Dates: start: 20090101, end: 20090501
  10. ALEMTUZUMAB (ALEMTUZUMAB) [Suspect]
     Indication: GRAFT VERSUS HOST DISEASE
     Dosage: 3 MG, 1 IN 1 D,; 30 MG, 3 IN 1 WK,; 10 MG, 3 IN 1 WK,
     Dates: start: 20090101, end: 20090101
  11. FLUCONAZOLE [Suspect]
     Dates: start: 20090101

REACTIONS (2)
  - ACANTHAMOEBA INFECTION [None]
  - PSEUDOMONAL SEPSIS [None]
